FAERS Safety Report 4325258-9 (Version None)
Quarter: 2004Q1

REPORT INFORMATION
  Report Type: 
  Country: None (occurrence: None)
  Receive Date: 20040324
  Receipt Date: 20040316
  Transmission Date: 20041129
  Serious: Yes (Other)
  Sender: FDA-Public Use
  Company Number: 2004203783FI

PATIENT
  Age: 22 Year
  Sex: Female
  Weight: 66 kg

DRUGS (3)
  1. CARDIZEM [Suspect]
     Dosage: 60 MG, TID, ORAL
     Route: 048
  2. MEDROL [Suspect]
     Dosage: 16 MG, QD, ORAL
     Route: 048
  3. MIBEFRADIL(MIBEFRADIL) [Suspect]
     Dosage: 50 MG, QD, ORAL
     Route: 048

REACTIONS (3)
  - BLOOD CORTISOL DECREASED [None]
  - DRUG INTERACTION [None]
  - DRUG LEVEL INCREASED [None]
